FAERS Safety Report 17004744 (Version 1)
Quarter: 2019Q4

REPORT INFORMATION
  Report Type: Report from Study
  Country: US (occurrence: US)
  Receive Date: 20191107
  Receipt Date: 20191107
  Transmission Date: 20200122
  Serious: Yes (Hospitalization)
  Sender: FDA-Public Use
  Company Number: US-BAYER-2019-172240

PATIENT
  Age: 54 Year
  Sex: Male

DRUGS (1)
  1. STIVARGA [Suspect]
     Active Substance: REGORAFENIB
     Indication: COLORECTAL CANCER
     Dosage: 160 MG, QD 21 OUT OF 28 DAYS
     Route: 048
     Dates: start: 20190910

REACTIONS (6)
  - Oral pain [Not Recovered/Not Resolved]
  - Vomiting [None]
  - Pain in extremity [Not Recovered/Not Resolved]
  - Gastric ulcer [Recovering/Resolving]
  - Glossodynia [Not Recovered/Not Resolved]
  - Abdominal tenderness [Not Recovered/Not Resolved]

NARRATIVE: CASE EVENT DATE: 201909
